FAERS Safety Report 5131174-5 (Version None)
Quarter: 2006Q4

REPORT INFORMATION
  Report Type: 
  Country: None (occurrence: None)
  Receive Date: 20061020
  Receipt Date: 20061018
  Transmission Date: 20070319
  Serious: Yes (Other)
  Sender: FDA-Public Use
  Company Number: CA-SP-2006-02708

PATIENT
  Age: 22 Year
  Sex: Female

DRUGS (2)
  1. TUBERSOL [Suspect]
     Indication: TUBERCULIN TEST
     Route: 058
     Dates: start: 20061017
  2. TUBERSOL [Suspect]
     Route: 023
     Dates: start: 20061017

REACTIONS (9)
  - COLD SWEAT [None]
  - DIZZINESS [None]
  - DYSPNOEA [None]
  - INCORRECT ROUTE OF DRUG ADMINISTRATION [None]
  - INJECTION SITE PRURITUS [None]
  - LACK OF SPONTANEOUS SPEECH [None]
  - MALAISE [None]
  - PALLOR [None]
  - TINNITUS [None]
